FAERS Safety Report 21908431 (Version 2)
Quarter: 2023Q1

REPORT INFORMATION
  Report Type: Spontaneous
  Country: IT (occurrence: IT)
  Receive Date: 20230125
  Receipt Date: 20230213
  Transmission Date: 20230418
  Serious: Yes (Hospitalization, Other)
  Sender: FDA-Public Use
  Company Number: IT-TEVA-2023-IT-2848612

PATIENT
  Sex: Female

DRUGS (5)
  1. PREDNISONE [Suspect]
     Active Substance: PREDNISONE
     Indication: Eosinophilic granulomatosis with polyangiitis
     Dosage: .1 MG/KG DAILY; ROUTE: SYSTEMIC
     Route: 050
     Dates: start: 2016
  2. PREDNISONE [Suspect]
     Active Substance: PREDNISONE
     Dosage: 0.8-1 MG/KG/DAY, ROUTE: SYSTEMIC
     Route: 050
  3. AZATHIOPRINE [Suspect]
     Active Substance: AZATHIOPRINE
     Indication: Eosinophilic granulomatosis with polyangiitis
     Route: 065
  4. OMALIZUMAB [Concomitant]
     Active Substance: OMALIZUMAB
     Indication: Eosinophilic granulomatosis with polyangiitis
     Route: 065
  5. MEPOLIZUMAB [Concomitant]
     Active Substance: MEPOLIZUMAB
     Indication: Eosinophilic granulomatosis with polyangiitis
     Route: 065

REACTIONS (3)
  - Steroid diabetes [Unknown]
  - Strongyloidiasis [Recovering/Resolving]
  - Central nervous system infection [Recovering/Resolving]

NARRATIVE: CASE EVENT DATE: 20210101
